FAERS Safety Report 5327264-4 (Version None)
Quarter: 2007Q2

REPORT INFORMATION
  Report Type: 
  Country: None (occurrence: None)
  Receive Date: 20070517
  Receipt Date: 20070509
  Transmission Date: 20071010
  Serious: Yes (Hospitalization)
  Sender: FDA-Public Use
  Company Number: FR-ROCHE-496699

PATIENT
  Age: 28 Year
  Sex: Male
  Weight: 67 kg

DRUGS (4)
  1. ROCEPHIN [Suspect]
     Route: 042
     Dates: start: 20070328, end: 20070402
  2. DAFALGAN [Suspect]
     Indication: DRUG USE FOR UNKNOWN INDICATION
     Route: 048
     Dates: start: 20070328, end: 20070402
  3. LARIAM [Concomitant]
     Route: 048
  4. ACUPAN [Concomitant]
     Dosage: ONE DOSE WHEN NEEDED.
     Route: 048

REACTIONS (6)
  - ALANINE AMINOTRANSFERASE INCREASED [None]
  - ASPARTATE AMINOTRANSFERASE INCREASED [None]
  - GAMMA-GLUTAMYLTRANSFERASE INCREASED [None]
  - LEUKOPENIA [None]
  - NEUTROPENIA [None]
  - THROMBOCYTOPENIA [None]
